FAERS Safety Report 6170176-7 (Version None)
Quarter: 2009Q2

REPORT INFORMATION
  Report Type: 
  Country: None (occurrence: None)
  Receive Date: 20090427
  Receipt Date: 20090427
  Transmission Date: 20091009
  Serious: No
  Sender: FDA-Public Use
  Company Number: None

PATIENT
  Sex: Female
  Weight: 82.27 kg

DRUGS (12)
  1. METOPROLOL TARTRATE [Suspect]
     Dosage: 25MG TABLET 12.5 MG BID
     Route: 048
     Dates: start: 20090407, end: 20090427
  2. ASPIRIN [Concomitant]
  3. GLUCOPHAGE [Concomitant]
  4. HYDROCHLOROTHIAZIDE [Concomitant]
  5. HUMALOG INSULIN (INSULIN LISPRO) [Concomitant]
  6. IBUPROFEN [Concomitant]
  7. LANTUS [Concomitant]
  8. LISINOPRIL [Concomitant]
  9. NORTRIPTYLINE HCL [Concomitant]
  10. NTG (NITROGLYCERIN) [Concomitant]
  11. PRILOSEC OTC (OMEPRAZOLE OTC) [Concomitant]
  12. SIMVASTATIN [Concomitant]

REACTIONS (1)
  - PARAESTHESIA ORAL [None]
